FAERS Safety Report 4843858-4 (Version None)
Quarter: 2005Q4

REPORT INFORMATION
  Report Type: 
  Country: None (occurrence: None)
  Receive Date: 20051201
  Receipt Date: 20051201
  Transmission Date: 20060501
  Serious: Yes (Other)
  Sender: FDA-Public Use
  Company Number: None

PATIENT
  Age: 63 Year
  Sex: Male
  Weight: 155 kg

DRUGS (4)
  1. METFORMIN ER 500 MG PAR [Suspect]
     Indication: DIABETES MELLITUS
     Dosage: 2 TABLETS TWICE A DAY (NEW DIRECTIONS)
     Dates: start: 20051017
  2. GLIPZIDE XL [Concomitant]
  3. LIPITOR [Concomitant]
  4. LISINOPRIL [Concomitant]

REACTIONS (1)
  - BLOOD GLUCOSE INCREASED [None]
